FAERS Safety Report 14157132 (Version 2)
Quarter: 2017Q4

REPORT INFORMATION
  Report Type: Spontaneous
  Country: BR (occurrence: BR)
  Receive Date: 20171103
  Receipt Date: 20171115
  Transmission Date: 20180321
  Serious: Yes (Other)
  Sender: FDA-Public Use
  Company Number: BR-PFIZER INC-2017470729

PATIENT
  Age: 79 Year
  Sex: Male

DRUGS (9)
  1. CELEBRA [Suspect]
     Active Substance: CELECOXIB
     Indication: BACK PAIN
     Dosage: UNK, EACH 12 TO 12 HOURS
     Route: 048
     Dates: start: 20151209
  2. LISADOR [Concomitant]
     Active Substance: DIPYRONE\PROMETHAZINE HYDROCHLORIDE
  3. SERTRALINE [Concomitant]
     Active Substance: SERTRALINE HYDROCHLORIDE
  4. PREGABALIN. [Concomitant]
     Active Substance: PREGABALIN
  5. AMITRIPTYLINE [Concomitant]
     Active Substance: AMITRIPTYLINE
  6. FUROSEMIDA [Concomitant]
     Active Substance: FUROSEMIDE
  7. TRAMADOL. [Concomitant]
     Active Substance: TRAMADOL
  8. DIAZEPAM. [Concomitant]
     Active Substance: DIAZEPAM
  9. ENALAPRIL [Concomitant]
     Active Substance: ENALAPRIL

REACTIONS (2)
  - Hepatic vascular thrombosis [Unknown]
  - Spinal disorder [Not Recovered/Not Resolved]

NARRATIVE: CASE EVENT DATE: 201701
